FAERS Safety Report 16008484 (Version 2)
Quarter: 2020Q2

REPORT INFORMATION
  Report Type: Spontaneous
  Country: NO (occurrence: NO)
  Receive Date: 20190225
  Receipt Date: 20200406
  Transmission Date: 20200713
  Serious: Yes (Hospitalization, Disabling, Other)
  Sender: FDA-Public Use
  Company Number: NO-ABBVIE-19K-122-2674647-00

PATIENT
  Age: 41 Year
  Sex: Female

DRUGS (5)
  1. NEXIUM [Concomitant]
     Active Substance: ESOMEPRAZOLE MAGNESIUM
     Indication: PRODUCT USED FOR UNKNOWN INDICATION
  2. HUMIRA [Suspect]
     Active Substance: ADALIMUMAB
     Indication: CROHN^S DISEASE
     Route: 058
     Dates: end: 201305
  3. HUMIRA [Suspect]
     Active Substance: ADALIMUMAB
     Route: 058
     Dates: end: 201504
  4. HUMIRA [Suspect]
     Active Substance: ADALIMUMAB
     Indication: ANKYLOSING SPONDYLITIS
     Route: 058
     Dates: start: 201403
  5. HUMIRA [Suspect]
     Active Substance: ADALIMUMAB
     Route: 058
     Dates: end: 20180501

REACTIONS (20)
  - Multiple sclerosis [Recovering/Resolving]
  - Memory impairment [Unknown]
  - Malaise [Unknown]
  - Pain [Unknown]
  - Malaise [Unknown]
  - Sinusitis [Unknown]
  - Gastrointestinal disorder [Unknown]
  - Disturbance in attention [Unknown]
  - Headache [Unknown]
  - Skin disorder [Unknown]
  - Hypoaesthesia [Unknown]
  - Fatigue [Unknown]
  - Dizziness [Unknown]
  - Gastrointestinal wall abnormal [Unknown]
  - Multiple sclerosis [Unknown]
  - Fatigue [Unknown]
  - Pneumonia [Unknown]
  - Optic nerve disorder [Recovering/Resolving]
  - Seizure [Unknown]
  - Balance disorder [Unknown]

NARRATIVE: CASE EVENT DATE: 2013
